FAERS Safety Report 14915324 (Version 1)
Quarter: 2018Q2

REPORT INFORMATION
  Report Type: Report from Study
  Country: BE (occurrence: BE)
  Receive Date: 20180518
  Receipt Date: 20180518
  Transmission Date: 20180711
  Serious: Yes (Hospitalization)
  Sender: FDA-Public Use
  Company Number: PHHY2018BE006814

PATIENT
  Age: 73 Year
  Sex: Female
  Weight: 56.5 kg

DRUGS (3)
  1. AFINITOR [Suspect]
     Active Substance: EVEROLIMUS
     Indication: BREAST CANCER
     Dosage: 10 MG, QD (10 MG 1X/DAY)
     Route: 048
     Dates: start: 20171106, end: 20180504
  2. COVERSYL                                /BEL/ [Concomitant]
     Active Substance: PERINDOPRIL ARGININE
     Indication: HYPERTENSION
     Dosage: 2.5 MG, QD (1X/DAY)
     Route: 065
     Dates: start: 201804
  3. AROMASIN [Concomitant]
     Active Substance: EXEMESTANE
     Indication: BREAST CANCER METASTATIC
     Dosage: 25 MG, QD (1X/DAY)
     Route: 065
     Dates: start: 20171006, end: 20180504

REACTIONS (17)
  - Malaise [Unknown]
  - Fall [Unknown]
  - Decreased appetite [Unknown]
  - Tumour marker increased [Unknown]
  - Glomerular filtration rate decreased [Unknown]
  - Haemoglobin decreased [Unknown]
  - Mean cell volume decreased [Unknown]
  - Weight decreased [Unknown]
  - Blood magnesium decreased [Unknown]
  - Blood creatinine decreased [Unknown]
  - Red cell distribution width increased [Unknown]
  - Gamma-glutamyltransferase increased [Unknown]
  - Hyponatraemia [Recovering/Resolving]
  - Blood chloride decreased [Unknown]
  - Haematocrit decreased [Unknown]
  - Mean cell haemoglobin concentration increased [Unknown]
  - C-reactive protein increased [Unknown]

NARRATIVE: CASE EVENT DATE: 201804
